FAERS Safety Report 4682521-X (Version None)
Quarter: 2005Q2

REPORT INFORMATION
  Report Type: 
  Country: None (occurrence: None)
  Receive Date: 20050606
  Receipt Date: 20050314
  Transmission Date: 20051028
  Serious: Yes (Hospitalization)
  Sender: FDA-Public Use
  Company Number: US-MERCK-0503USA02927

PATIENT
  Age: 44 Year
  Sex: Male
  Weight: 93 kg

DRUGS (10)
  1. VIOXX [Suspect]
     Indication: BACK PAIN
     Route: 048
     Dates: start: 20031213, end: 20031219
  2. VIOXX [Suspect]
     Route: 048
     Dates: start: 20031201, end: 20040408
  3. VIOXX [Suspect]
     Route: 048
     Dates: start: 20031213, end: 20031219
  4. VIOXX [Suspect]
     Route: 048
     Dates: start: 20031201, end: 20040408
  5. VIOXX [Suspect]
     Indication: MUSCLE SPASMS
     Route: 048
     Dates: start: 20031213, end: 20031219
  6. VIOXX [Suspect]
     Route: 048
     Dates: start: 20031201, end: 20040408
  7. VIOXX [Suspect]
     Route: 048
     Dates: start: 20031213, end: 20031219
  8. VIOXX [Suspect]
     Route: 048
     Dates: start: 20031201, end: 20040408
  9. ADVIL [Concomitant]
     Route: 065
  10. LORTAB [Concomitant]
     Route: 065
     Dates: start: 20031213

REACTIONS (9)
  - ACUTE MYOCARDIAL INFARCTION [None]
  - BACK INJURY [None]
  - BRADYCARDIA [None]
  - CHEST PAIN [None]
  - CORONARY ARTERY DISEASE [None]
  - DRUG INEFFECTIVE [None]
  - ELECTROCARDIOGRAM ST SEGMENT ELEVATION [None]
  - EMOTIONAL DISTRESS [None]
  - HYPOTENSION [None]
